FAERS Safety Report 13598822 (Version 14)
Quarter: 2018Q1

REPORT INFORMATION
  Report Type: Report from Study
  Country: US (occurrence: US)
  Receive Date: 20170531
  Receipt Date: 20180329
  Transmission Date: 20180508
  Serious: Yes (Other)
  Sender: FDA-Public Use
  Company Number: PHHO2017US008582

PATIENT
  Age: 28 Year
  Sex: Female
  Weight: 54.3 kg

DRUGS (29)
  1. GSK2118436 [Suspect]
     Active Substance: DABRAFENIB
     Indication: GLIOMA
     Dosage: UNK
     Route: 048
     Dates: start: 20170405, end: 20170501
  2. GSK1120212 [Suspect]
     Active Substance: TRAMETINIB
     Indication: GLIOMA
     Dosage: 2 MG, UNK
     Route: 048
     Dates: start: 20170405, end: 20170501
  3. GSK1120212 [Suspect]
     Active Substance: TRAMETINIB
     Dosage: 1.5 MG, UNK
     Route: 048
     Dates: start: 20170522, end: 20170529
  4. GSK2118436 [Suspect]
     Active Substance: DABRAFENIB
     Dosage: 150 MG TOTAL DAILY
     Route: 048
     Dates: start: 20170925, end: 20171004
  5. GSK2118436 [Suspect]
     Active Substance: DABRAFENIB
     Dosage: 150 MG TOTAL DAILY
     Route: 048
     Dates: start: 20170911, end: 20170920
  6. GSK2118436 [Suspect]
     Active Substance: DABRAFENIB
     Dosage: 150 MG TOTAL DAILY DOSE
     Route: 048
     Dates: start: 20171023, end: 20171023
  7. GSK2118436 [Suspect]
     Active Substance: DABRAFENIB
     Dosage: 75 MG, BID
     Route: 048
     Dates: start: 20171130, end: 20171211
  8. GSK2118436 [Suspect]
     Active Substance: DABRAFENIB
     Dosage: 100 MG, BID
     Route: 048
     Dates: start: 20171212, end: 20180109
  9. GSK1120212 [Suspect]
     Active Substance: TRAMETINIB
     Dosage: 1 MG, UNK
     Route: 048
     Dates: start: 20171111, end: 20171119
  10. GSK2118436 [Suspect]
     Active Substance: DABRAFENIB
     Dosage: 100 MG, QD
     Route: 048
     Dates: start: 20170530, end: 20170530
  11. GSK1120212 [Suspect]
     Active Substance: TRAMETINIB
     Dosage: 1 MG, UNK
     Route: 048
     Dates: start: 20170731, end: 20170808
  12. GSK1120212 [Suspect]
     Active Substance: TRAMETINIB
     Dosage: 1 MG, UNK
     Route: 048
     Dates: start: 20170925, end: 20171004
  13. GSK1120212 [Suspect]
     Active Substance: TRAMETINIB
     Dosage: 1 UNK, UNK
     Route: 048
     Dates: start: 20171023, end: 20171023
  14. GSK2118436 [Suspect]
     Active Substance: DABRAFENIB
     Dosage: 150 MG TOTAL DAILY DOSE
     Route: 048
     Dates: start: 20171026, end: 20171106
  15. GSK1120212 [Suspect]
     Active Substance: TRAMETINIB
     Dosage: 1 MG, UNK
     Route: 048
     Dates: start: 20170704, end: 20170718
  16. GSK1120212 [Suspect]
     Active Substance: TRAMETINIB
     Dosage: 1 MG, UNK
     Route: 048
     Dates: start: 20170911, end: 20170920
  17. GSK2118436 [Suspect]
     Active Substance: DABRAFENIB
     Dosage: 200 MG TOTAL DAILY DOSE)
     Route: 048
     Dates: start: 20170531, end: 20170627
  18. GSK2118436 [Suspect]
     Active Substance: DABRAFENIB
     Dosage: 150 MG TOTAL DAILY
     Route: 048
     Dates: start: 20171009, end: 20171018
  19. GSK1120212 [Suspect]
     Active Substance: TRAMETINIB
     Dosage: 1 MG, UNK
     Route: 048
     Dates: start: 20170814, end: 20170822
  20. GSK1120212 [Suspect]
     Active Substance: TRAMETINIB
     Dosage: 1 MG, UNK
     Route: 048
     Dates: start: 20171026, end: 20171106
  21. GSK2118436 [Suspect]
     Active Substance: DABRAFENIB
     Dosage: 100 MG, BID
     Route: 048
     Dates: start: 20170522, end: 20170529
  22. GSK2118436 [Suspect]
     Active Substance: DABRAFENIB
     Dosage: 150 MG TOTAL DAILY DOSE
     Route: 048
     Dates: start: 20171111, end: 20171119
  23. GSK1120212 [Suspect]
     Active Substance: TRAMETINIB
     Dosage: 1.5 MG, UNK
     Route: 048
     Dates: start: 20170531, end: 20170627
  24. GSK1120212 [Suspect]
     Active Substance: TRAMETINIB
     Dosage: 1 MG, UNK
     Route: 048
     Dates: start: 20170827, end: 20170906
  25. GSK1120212 [Suspect]
     Active Substance: TRAMETINIB
     Dosage: 1 MG, UNK
     Route: 048
     Dates: start: 20171009, end: 20171018
  26. GSK2118436 [Suspect]
     Active Substance: DABRAFENIB
     Dosage: 75 MG, BID
     Route: 048
     Dates: start: 20170704, end: 20170718
  27. GSK2118436 [Suspect]
     Active Substance: DABRAFENIB
     Dosage: 150 MG TOTAL DAILY DOSE
     Route: 048
     Dates: start: 20170731, end: 20170808
  28. GSK2118436 [Suspect]
     Active Substance: DABRAFENIB
     Dosage: 150 MG TOTAL DAILY DOSE
     Route: 048
     Dates: start: 20170814, end: 20170822
  29. GSK2118436 [Suspect]
     Active Substance: DABRAFENIB
     Dosage: 150 MG TOTAL DAILY
     Route: 048
     Dates: start: 20170827, end: 20170906

REACTIONS (4)
  - Second primary malignancy [Not Recovered/Not Resolved]
  - Ventricular extrasystoles [Recovered/Resolved]
  - Papilloma viral infection [Recovered/Resolved]
  - Cervix carcinoma stage 0 [Not Recovered/Not Resolved]

NARRATIVE: CASE EVENT DATE: 20170502
